FAERS Safety Report 7831208-0 (Version None)
Quarter: 2011Q4

REPORT INFORMATION
  Report Type: 
  Country: None (occurrence: None)
  Receive Date: 20111021
  Receipt Date: 20111012
  Transmission Date: 20120403
  Serious: Yes (Other)
  Sender: FDA-Public Use
  Company Number: US-ROCHE-GNE284148

PATIENT
  Sex: Male

DRUGS (2)
  1. LUCENTIS [Suspect]
     Indication: AGE-RELATED MACULAR DEGENERATION
     Dosage: UNK
     Route: 031
  2. VITAMIN TAB [Concomitant]
     Indication: PRODUCT USED FOR UNKNOWN INDICATION

REACTIONS (8)
  - BALANCE DISORDER [None]
  - BLINDNESS [None]
  - ILL-DEFINED DISORDER [None]
  - INTRAOCULAR PRESSURE INCREASED [None]
  - EYE PAIN [None]
  - HALLUCINATION [None]
  - VISUAL FIELD DEFECT [None]
  - GLAUCOMA [None]
